FAERS Safety Report 4358746-X (Version None)
Quarter: 2004Q2

REPORT INFORMATION
  Report Type: 
  Country: None (occurrence: None)
  Receive Date: 20040511
  Receipt Date: 20040503
  Transmission Date: 20050107
  Serious: Yes (Hospitalization)
  Sender: FDA-Public Use
  Company Number: 2004208004SE

PATIENT
  Age: 75 Year
  Sex: Male

DRUGS (8)
  1. CLINDAMYCIN [Suspect]
     Indication: WOUND INFECTION
     Dosage: 1.8 G DAILY
     Dates: start: 20031209, end: 20031213
  2. PROPIOMAZINE [Concomitant]
  3. ALLOPURINOL [Concomitant]
  4. FUROSEMIDE [Concomitant]
  5. ATENOLOL [Concomitant]
  6. FLUNITRAZEPAM ^NM PHARMA^ [Concomitant]
  7. ENALAPRIL MALEATE [Concomitant]
  8. EPOETIN ALFA [Concomitant]

REACTIONS (8)
  - DEHYDRATION [None]
  - DERMATITIS EXFOLIATIVE [None]
  - EXANTHEM [None]
  - FATIGUE [None]
  - HAEMODIALYSIS [None]
  - RASH SCALY [None]
  - RENAL ATROPHY [None]
  - RENAL CYST [None]
